FAERS Safety Report 5819501-4 (Version None)
Quarter: 2008Q3

REPORT INFORMATION
  Report Type: 
  Country: None (occurrence: None)
  Receive Date: 20080723
  Receipt Date: 20080714
  Transmission Date: 20090109
  Serious: Yes (Death, Life-Threatening)
  Sender: FDA-Public Use
  Company Number: US-PURDUE-USA_2008_0033184

PATIENT
  Age: 19 Year
  Sex: Female
  Weight: 59 kg

DRUGS (6)
  1. OXYCONTIN [Suspect]
     Indication: DRUG ABUSE
     Dosage: UNK MG, UNK
     Route: 048
  2. COCAINE [Suspect]
     Indication: DRUG ABUSE
     Dosage: UNK MG, UNK
  3. ALCOHOL [Suspect]
     Indication: DRUG ABUSE
     Dosage: UNK, UNK
     Route: 048
  4. LIDOCAINE [Suspect]
     Indication: DRUG ABUSE
     Dosage: UNK MG, UNK
     Route: 048
  5. ACETAMINOPHEN [Suspect]
     Indication: DRUG ABUSE
     Dosage: UNK MG, UNK
  6. DILTIAZEM HCL [Suspect]
     Indication: DRUG ABUSE
     Dosage: UNK MG, UNK

REACTIONS (3)
  - COMA [None]
  - DRUG TOXICITY [None]
  - SUBSTANCE ABUSE [None]
